FAERS Safety Report 20841510 (Version 3)
Quarter: 2023Q2

REPORT INFORMATION
  Report Type: Other
  Country: AU (occurrence: AU)
  Receive Date: 20220518
  Receipt Date: 20230531
  Transmission Date: 20230722
  Serious: Yes (Other)
  Sender: FDA-Public Use
  Company Number: AU-TOLMAR, INC.-22AU034052

PATIENT
  Sex: Male

DRUGS (1)
  1. ELIGARD [Suspect]
     Active Substance: LEUPROLIDE ACETATE
     Indication: Prostate cancer
     Dosage: 45 MILLIGRAM, Q 6 MONTH

REACTIONS (6)
  - Pulmonary mass [Unknown]
  - COVID-19 [Unknown]
  - Gynaecomastia [Unknown]
  - Depressed mood [Unknown]
  - Libido decreased [Unknown]
  - Hot flush [Unknown]
